FAERS Safety Report 7755396-X (Version None)
Quarter: 2011Q3

REPORT INFORMATION
  Report Type: 
  Country: None (occurrence: None)
  Receive Date: 20110916
  Receipt Date: 20110908
  Transmission Date: 20111222
  Serious: Yes (Hospitalization)
  Sender: FDA-Public Use
  Company Number: US-JNJFOC-20110712383

PATIENT
  Sex: Male
  Weight: 74.84 kg

DRUGS (9)
  1. HALDOL [Suspect]
     Indication: CONFUSIONAL STATE
     Route: 065
     Dates: start: 20110429
  2. HALDOL [Suspect]
     Route: 065
     Dates: start: 20110427, end: 20110427
  3. HALDOL [Suspect]
     Route: 065
     Dates: start: 20110427, end: 20110427
  4. ATIVAN [Suspect]
     Indication: CONFUSIONAL STATE
     Route: 065
  5. HALDOL [Suspect]
     Route: 065
     Dates: start: 20110427, end: 20110427
  6. HALDOL [Suspect]
     Indication: DEHYDRATION
     Route: 065
     Dates: start: 20110429
  7. ATIVAN [Suspect]
     Indication: AGITATION
     Route: 065
  8. ATIVAN [Suspect]
     Indication: DEHYDRATION
     Route: 065
  9. HALDOL [Suspect]
     Indication: AGITATION
     Route: 065
     Dates: start: 20110429

REACTIONS (8)
  - EPISTAXIS [None]
  - APHASIA [None]
  - HEADACHE [None]
  - JOINT CREPITATION [None]
  - MEMORY IMPAIRMENT [None]
  - TARDIVE DYSKINESIA [None]
  - TRISMUS [None]
  - OEDEMA MOUTH [None]
